FAERS Safety Report 11315416 (Version 1)
Quarter: 2015Q3

REPORT INFORMATION
  Report Type: Spontaneous
  Country: FR (occurrence: FR)
  Receive Date: 20150728
  Receipt Date: 20150728
  Transmission Date: 20151125
  Serious: Yes (Hospitalization)
  Sender: FDA-Public Use
  Company Number: FR-ASTRAZENECA-2015SE71847

PATIENT
  Age: 22158 Day
  Sex: Male

DRUGS (12)
  1. XANAX [Suspect]
     Active Substance: ALPRAZOLAM
     Route: 048
     Dates: start: 20140919, end: 20150612
  2. NOCTAMIDE [Concomitant]
     Active Substance: LORMETAZEPAM
  3. KARDEGIC [Concomitant]
     Active Substance: ASPIRIN LYSINE
  4. VOLTARENE [Suspect]
     Active Substance: DICLOFENAC SODIUM
     Route: 048
     Dates: start: 20150430, end: 20150612
  5. EVIPLERA [Concomitant]
     Active Substance: EMTRICITABINE\RILPIVIRINE\TENOFOVIR DISOPROXIL FUMARATE
     Dosage: 200 MG + 25 MG + 245 MG ONE DF DAILY
     Route: 048
     Dates: start: 201212, end: 20150624
  6. EFFEXOR [Concomitant]
     Active Substance: VENLAFAXINE HYDROCHLORIDE
  7. ACTISKENAN [Concomitant]
     Active Substance: MORPHINE SULFATE
  8. DUROGESIC [Concomitant]
     Active Substance: FENTANYL
  9. LYRICA [Concomitant]
     Active Substance: PREGABALIN
  10. NEBIVOLOL. [Concomitant]
     Active Substance: NEBIVOLOL
  11. ATACAND [Suspect]
     Active Substance: CANDESARTAN CILEXETIL
     Route: 048
     Dates: end: 20150612
  12. MACROGOL [Concomitant]
     Active Substance: POLYETHYLENE GLYCOLS

REACTIONS (1)
  - Mixed liver injury [Recovering/Resolving]

NARRATIVE: CASE EVENT DATE: 20150612
